FAERS Safety Report 4622267-7 (Version None)
Quarter: 2005Q1

REPORT INFORMATION
  Report Type: 
  Country: None (occurrence: None)
  Receive Date: 20050328
  Receipt Date: 20050321
  Transmission Date: 20050727
  Serious: No
  Sender: FDA-Public Use
  Company Number: 2005AP01816

PATIENT
  Age: 39 Year
  Sex: Male

DRUGS (1)
  1. RHINOCORT [Suspect]
     Indication: RHINITIS
     Dosage: 2 PUFF BID, IN
     Route: 055
     Dates: start: 20050201, end: 20050201

REACTIONS (1)
  - GENITAL ULCERATION [None]
